FAERS Safety Report 16915981 (Version 1)
Quarter: 2019Q4

REPORT INFORMATION
  Report Type: Spontaneous
  Country: CA (occurrence: CA)
  Receive Date: 20191014
  Receipt Date: 20191014
  Transmission Date: 20200122
  Serious: Yes (Other)
  Sender: FDA-Public Use
  Company Number: CA-TEVA-2019-CA-1119657

PATIENT
  Age: 75 Year
  Sex: Female
  Weight: 46 kg

DRUGS (6)
  1. MEZAVANT ALSO KNOWN AS MESALAMINE [Concomitant]
     Active Substance: MESALAMINE
     Dosage: 4.8 MILLIGRAM DAILY;
     Route: 048
  2. PENTASA [Concomitant]
     Active Substance: MESALAMINE
     Dosage: 4 GRAM DAILY;
     Route: 048
  3. CORTENEMA SUSPENSION [Concomitant]
     Dosage: 100 MILLIGRAM DAILY;
  4. GEMFIBROZIL. [Concomitant]
     Active Substance: GEMFIBROZIL
     Dosage: 1200 MILLIGRAM DAILY;
     Route: 048
  5. CANDESARTAN. [Concomitant]
     Active Substance: CANDESARTAN
     Dosage: 8 MILLIGRAM DAILY;
     Route: 048
  6. AMLODIPINE BESILATE [Suspect]
     Active Substance: AMLODIPINE BESYLATE
     Indication: PRODUCT USED FOR UNKNOWN INDICATION
     Dosage: 7.5 MILLIGRAM DAILY;
     Route: 048

REACTIONS (7)
  - Weight decreased [Recovered/Resolved]
  - Haematochezia [Recovered/Resolved]
  - Pleural thickening [Recovered/Resolved]
  - Pulmonary fibrosis [Recovered/Resolved]
  - Neoplasm malignant [Recovered/Resolved]
  - Colitis ulcerative [Recovered/Resolved]
  - Impaired quality of life [Recovered/Resolved]
